FAERS Safety Report 9286203 (Version 6)
Quarter: 2013Q3

REPORT INFORMATION
  Report Type: Spontaneous
  Country: US (occurrence: US)
  Receive Date: 20130513
  Receipt Date: 20130806
  Transmission Date: 20140515
  Serious: Yes (Hospitalization)
  Sender: FDA-Public Use
  Company Number: US-GLAXOSMITHKLINE-A1021973A

PATIENT
  Age: 55 Year
  Sex: Female

DRUGS (17)
  1. FLOLAN [Suspect]
     Indication: COR PULMONALE CHRONIC
     Dosage: 24.6NGKM SEE DOSAGE TEXT
     Route: 042
     Dates: start: 20030423
  2. ANTIBIOTICS [Suspect]
     Indication: URINARY TRACT INFECTION
     Dates: end: 20130714
  3. SILDENAFIL [Concomitant]
     Dosage: 50MG THREE TIMES PER DAY
  4. SINEMET [Concomitant]
     Indication: RESTLESS LEGS SYNDROME
  5. XANAX [Concomitant]
     Dosage: 1MG TWICE PER DAY
     Route: 048
  6. UNKNOWN [Concomitant]
  7. FLONASE [Concomitant]
     Dosage: 2PUFF PER DAY
     Route: 045
  8. IMODIUM [Concomitant]
     Indication: DIARRHOEA
     Dosage: 2MG AS REQUIRED
     Route: 048
  9. CLARITIN [Concomitant]
     Dosage: 10MG PER DAY
     Route: 048
  10. KCL [Concomitant]
     Dosage: 40MEQ TWICE PER DAY
  11. HYDROCODONE BITARTRATE [Concomitant]
  12. OXYGEN [Concomitant]
  13. PHENERGAN [Concomitant]
     Indication: NAUSEA
     Dosage: 25MG AS REQUIRED
     Route: 048
  14. DEMADEX [Concomitant]
     Route: 048
  15. ZAROXOLYN [Concomitant]
     Dosage: 2.5MG SEE DOSAGE TEXT
     Route: 048
  16. COUMADIN [Concomitant]
     Route: 048
  17. METOPROLOL [Concomitant]
     Route: 048

REACTIONS (19)
  - Right ventricular failure [Recovering/Resolving]
  - Cystitis klebsiella [Unknown]
  - Coeliac disease [Recovering/Resolving]
  - Fluid overload [Recovering/Resolving]
  - Palpitations [Recovering/Resolving]
  - Diarrhoea [Recovering/Resolving]
  - International normalised ratio increased [Recovering/Resolving]
  - Blood creatinine increased [Recovering/Resolving]
  - Iron deficiency anaemia [Recovering/Resolving]
  - Gastroenteritis viral [Unknown]
  - Arthritis [Not Recovered/Not Resolved]
  - Oedema peripheral [Unknown]
  - Hyperhidrosis [Unknown]
  - Catheter site pruritus [Unknown]
  - Supraventricular tachycardia [Unknown]
  - Atrial tachycardia [Unknown]
  - Atrial flutter [Unknown]
  - Headache [Unknown]
  - Pain in extremity [Unknown]
